FAERS Safety Report 9940283 (Version 1)
Quarter: 2014Q1

REPORT INFORMATION
  Report Type: Spontaneous
  Country: US (occurrence: US)
  Receive Date: 20140303
  Receipt Date: 20140303
  Transmission Date: 20141002
  Serious: No
  Sender: FDA-Public Use
  Company Number: US-ABBVIE-13P-163-1033893-00

PATIENT
  Age: 54 Year
  Sex: Male

DRUGS (8)
  1. HUMIRA [Suspect]
     Indication: PSORIASIS
     Dates: start: 20121023
  2. ZETIA [Concomitant]
     Indication: BLOOD CHOLESTEROL
  3. LOVATO [Concomitant]
     Indication: BLOOD CHOLESTEROL
  4. ASPIRIN [Concomitant]
     Indication: CORONARY ARTERY DISEASE
  5. ALLOPURINOL [Concomitant]
     Indication: NEPHROLITHIASIS
  6. NITROQUICK [Concomitant]
     Indication: CORONARY ARTERY DISEASE
     Dosage: HAS NEVER USED
  7. VITAMINS [Concomitant]
     Indication: PRODUCT USED FOR UNKNOWN INDICATION
  8. OTC SUPPLEMENTS [Concomitant]
     Indication: PRODUCT USED FOR UNKNOWN INDICATION

REACTIONS (2)
  - Pain in extremity [Not Recovered/Not Resolved]
  - Psoriasis [Unknown]
